FAERS Safety Report 15089419 (Version 2)
Quarter: 2018Q3

REPORT INFORMATION
  Report Type: Report from Study
  Country: US (occurrence: US)
  Receive Date: 20180629
  Receipt Date: 20180704
  Transmission Date: 20181010
  Serious: Yes (Death, Hospitalization)
  Sender: FDA-Public Use
  Company Number: US-TAIHO ONCOLOGY INC-EU-2018-00864

PATIENT
  Age: 68 Year
  Sex: Female

DRUGS (7)
  1. FENTANYL. [Concomitant]
     Active Substance: FENTANYL
  2. REMERON [Concomitant]
     Active Substance: MIRTAZAPINE
     Dosage: NI
  3. MORPHINE [Concomitant]
     Active Substance: MORPHINE
     Dosage: NI
  4. LONSURF [Suspect]
     Active Substance: TIPIRACIL HYDROCHLORIDE\TRIFLURIDINE
     Indication: COLON CANCER METASTATIC
     Dosage: COMPLETED CYCLE 2 DATE UNKNOWN
     Route: 048
     Dates: start: 20180315
  5. ATIVAN [Concomitant]
     Active Substance: LORAZEPAM
     Dosage: NI
  6. ACETYLSALICYLIC ACID [Concomitant]
     Active Substance: ASPIRIN
     Dosage: NI
  7. CYMBALTA [Concomitant]
     Active Substance: DULOXETINE HYDROCHLORIDE
     Dosage: NI

REACTIONS (2)
  - Death [Fatal]
  - Blood urine present [Unknown]

NARRATIVE: CASE EVENT DATE: 201806
